FAERS Safety Report 4279948-7 (Version None)
Quarter: 2004Q1

REPORT INFORMATION
  Report Type: 
  Country: None (occurrence: None)
  Receive Date: 20040126
  Receipt Date: 20040117
  Transmission Date: 20041129
  Serious: Yes (Other)
  Sender: FDA-Public Use
  Company Number: 805#8#2004-00001

PATIENT
  Age: 36 Year
  Sex: Male

DRUGS (2)
  1. PROSTANDIN-I.A (ALPROSTADIL (PAOD) ) [Suspect]
     Indication: HYPOTENSION
     Dosage: INTRA-ARTERIAL
     Route: 013
  2. PROSTANDIN-I.A (ALPROSTADIL (PAOD) ) [Suspect]
     Indication: SURGERY
     Dosage: INTRA-ARTERIAL
     Route: 013

REACTIONS (1)
  - HAEMORRHAGIC DIATHESIS [None]
